FAERS Safety Report 7504617-7 (Version None)
Quarter: 2011Q2

REPORT INFORMATION
  Report Type: 
  Country: None (occurrence: None)
  Receive Date: 20110525
  Receipt Date: 20110222
  Transmission Date: 20111010
  Serious: Yes (Other)
  Sender: FDA-Public Use
  Company Number: US-AMGEN-USASP2011010509

PATIENT
  Age: 63 Year
  Sex: Female

DRUGS (3)
  1. CORTICOSTEROIDS [Concomitant]
  2. VINCRISTINE                        /00078802/ [Concomitant]
     Dosage: UNK
     Dates: start: 20100120
  3. NPLATE [Suspect]
     Indication: IDIOPATHIC THROMBOCYTOPENIC PURPURA
     Dosage: 100 A?G, ONE TIME DOSE
     Route: 058
     Dates: start: 20100121, end: 20100121

REACTIONS (1)
  - DRUG INEFFECTIVE [None]
